FAERS Safety Report 14928152 (Version 1)
Quarter: 2018Q2

REPORT INFORMATION
  Report Type: Spontaneous
  Country: DE (occurrence: DE)
  Receive Date: 20180523
  Receipt Date: 20180523
  Transmission Date: 20180711
  Serious: Yes (Hospitalization, Other)
  Sender: FDA-Public Use
  Company Number: DE-ACCORD-067222

PATIENT
  Age: 14 Year
  Sex: Male

DRUGS (3)
  1. CALCIUM/ERGOCALCIFEROL [Concomitant]
     Indication: NUTRITIONAL SUPPLEMENTATION
  2. ARIPIPRAZOLE. [Suspect]
     Active Substance: ARIPIPRAZOLE
     Indication: PRODUCT USED FOR UNKNOWN INDICATION
  3. CIPRALEX [Interacting]
     Active Substance: ESCITALOPRAM OXALATE
     Indication: ANXIETY DISORDER
     Dosage: ALSO RECEIVED AT DOSE OF 20 GTT DROP(S) AND 10 GTT DROP(S) EVERY DAY
     Route: 048

REACTIONS (4)
  - Accidental overdose [Unknown]
  - Drug interaction [Unknown]
  - Disinhibition [Recovering/Resolving]
  - Abnormal behaviour [Recovering/Resolving]
